FAERS Safety Report 23153375 (Version 1)
Quarter: 2023Q4

REPORT INFORMATION
  Report Type: Spontaneous
  Country: AU (occurrence: AU)
  Receive Date: 20231107
  Receipt Date: 20231107
  Transmission Date: 20240110
  Serious: Yes (Other)
  Sender: FDA-Public Use
  Company Number: None

PATIENT

DRUGS (1)
  1. MEPOLIZUMAB [Suspect]
     Active Substance: MEPOLIZUMAB
     Indication: Chronic rhinosinusitis with nasal polyps
     Dosage: UNK
     Route: 058
     Dates: start: 20231101

REACTIONS (7)
  - Loss of consciousness [Unknown]
  - Dizziness [Recovering/Resolving]
  - Rhinorrhoea [Unknown]
  - Influenza like illness [Unknown]
  - Blood pressure decreased [Unknown]
  - Diarrhoea [Unknown]
  - Polymenorrhoea [Unknown]

NARRATIVE: CASE EVENT DATE: 20231101
